FAERS Safety Report 8585154-8 (Version None)
Quarter: 2012Q3

REPORT INFORMATION
  Report Type: 
  Country: None (occurrence: None)
  Receive Date: 20120810
  Receipt Date: 20120806
  Transmission Date: 20120928
  Serious: Yes (Disabling)
  Sender: FDA-Public Use
  Company Number: PHEH2012US003494

PATIENT
  Sex: Male
  Weight: 77.098 kg

DRUGS (5)
  1. GILENYA [Suspect]
     Indication: MULTIPLE SCLEROSIS
     Dosage: 0.5 MG, QD
     Route: 048
     Dates: start: 20120206, end: 20120618
  2. ZANAFLEX [Concomitant]
     Indication: MULTIPLE SCLEROSIS
     Dosage: 3 MG, TID
  3. PROVIGIL [Concomitant]
     Indication: MULTIPLE SCLEROSIS
     Dosage: 200 MG, QD
  4. NEURONTIN [Concomitant]
     Indication: MULTIPLE SCLEROSIS
     Dosage: 400 MG, TID
  5. REBIF [Concomitant]
     Indication: MULTIPLE SCLEROSIS
     Dosage: 44 UG, UNK

REACTIONS (2)
  - FATIGUE [None]
  - EYE DISORDER [None]
